FAERS Safety Report 12052794 (Version 1)
Quarter: 2016Q1

REPORT INFORMATION
  Report Type: Spontaneous
  Country: US (occurrence: US)
  Receive Date: 20160209
  Receipt Date: 20160209
  Transmission Date: 20160526
  Serious: Yes (Other)
  Sender: FDA-Public Use
  Company Number: US-ASTRAZENECA-2016SE11797

PATIENT
  Age: 59 Year
  Sex: Female

DRUGS (1)
  1. BRILINTA [Suspect]
     Active Substance: TICAGRELOR
     Indication: ACUTE CORONARY SYNDROME
     Route: 048

REACTIONS (6)
  - Confusional state [Unknown]
  - Road traffic accident [Unknown]
  - Myocardial infarction [Unknown]
  - Haemoptysis [Unknown]
  - Head injury [Unknown]
  - Drug interaction [Unknown]
